FAERS Safety Report 5099536-2 (Version None)
Quarter: 2006Q3

REPORT INFORMATION
  Report Type: 
  Country: None (occurrence: None)
  Receive Date: 20060906
  Receipt Date: 20060824
  Transmission Date: 20061208
  Serious: Yes (Other)
  Sender: FDA-Public Use
  Company Number: 2006104803

PATIENT
  Age: 54 Year
  Weight: 90.7194 kg

DRUGS (8)
  1. CELEBREX [Suspect]
     Indication: FIBROMYALGIA
     Dosage: 400 MG (200 MG, 2 IN 1 D),
     Dates: end: 20060601
  2. MOTRIN [Suspect]
     Indication: FIBROMYALGIA
     Dates: start: 20060601, end: 20060601
  3. VENLAFAXINE HCL [Concomitant]
  4. CHONDROITIN/GLUCOSAMINE (CHONDROITIN, GLUCOSAMINE) [Concomitant]
  5. MULTIVITAMIN [Concomitant]
  6. ACETAMINOPHEN [Concomitant]
  7. PEG-INTRON [Concomitant]
  8. RIBAVIRIN [Concomitant]

REACTIONS (9)
  - ALOPECIA [None]
  - DIZZINESS [None]
  - DRY SKIN [None]
  - EXTRASYSTOLES [None]
  - FATIGUE [None]
  - HEADACHE [None]
  - HEART RATE DECREASED [None]
  - MUSCLE SPASMS [None]
  - PRURITUS [None]
